FAERS Safety Report 5467271-4 (Version None)
Quarter: 2007Q3

REPORT INFORMATION
  Report Type: 
  Country: None (occurrence: None)
  Receive Date: 20070820
  Receipt Date: 20070816
  Transmission Date: 20080115
  Serious: No
  Sender: FDA-Public Use
  Company Number: WAES 0704USA06238

PATIENT
  Age: 84 Year
  Sex: Female
  Weight: 62.1428 kg

DRUGS (1)
  1. JANUVIA [Suspect]
     Indication: TYPE 2 DIABETES MELLITUS
     Dosage: 100 MG/ DAILY/ PO
     Route: 048
     Dates: start: 20070517, end: 20070520

REACTIONS (2)
  - FEELING ABNORMAL [None]
  - LIVER FUNCTION TEST ABNORMAL [None]
